FAERS Safety Report 15295936 (Version 2)
Quarter: 2018Q3

REPORT INFORMATION
  Report Type: Spontaneous
  Country: JP (occurrence: JP)
  Receive Date: 20180820
  Receipt Date: 20180926
  Transmission Date: 20181010
  Serious: Yes (Life-Threatening, Other)
  Sender: FDA-Public Use
  Company Number: JP-TEVA-2018-JP-945283

PATIENT
  Age: 67 Year
  Sex: Female

DRUGS (4)
  1. BENDAMUSTINE HYDROCHLORIDE. [Suspect]
     Active Substance: BENDAMUSTINE HYDROCHLORIDE
     Dosage: 90 MG/M2/DAY, CYCLIC (SECOND CYCLE)
     Route: 042
     Dates: start: 20180511, end: 20180512
  2. RITUXIMAB. [Suspect]
     Active Substance: RITUXIMAB
     Indication: PRODUCT USED FOR UNKNOWN INDICATION
     Dosage: CYCLIC (FIRST CYCLE)
     Route: 065
     Dates: start: 20180312
  3. RITUXIMAB. [Suspect]
     Active Substance: RITUXIMAB
     Dosage: CYCLIC (SECOND CYCLE)
     Route: 065
     Dates: start: 20180511
  4. BENDAMUSTINE HYDROCHLORIDE. [Suspect]
     Active Substance: BENDAMUSTINE HYDROCHLORIDE
     Indication: B-CELL LYMPHOMA
     Dosage: 90 MG/M2/DAY, CYCLIC (FIRST CYCLE)
     Route: 042
     Dates: start: 20180312, end: 20180313

REACTIONS (8)
  - Pyrexia [Recovered/Resolved]
  - Prescribed underdose [Unknown]
  - Platelet count decreased [Unknown]
  - Alopecia [Unknown]
  - Neutropenia [Unknown]
  - Lymphopenia [Unknown]
  - Cytomegalovirus enterocolitis [Unknown]
  - Histiocytosis haematophagic [Recovered/Resolved]

NARRATIVE: CASE EVENT DATE: 20180312
